FAERS Safety Report 9846295 (Version 2)
Quarter: 2014Q1

REPORT INFORMATION
  Report Type: Report from Study
  Country: US (occurrence: US)
  Receive Date: 20140127
  Receipt Date: 20140127
  Transmission Date: 20141002
  Serious: Yes (Hospitalization)
  Sender: FDA-Public Use
  Company Number: US-ROCHE-1260343

PATIENT
  Sex: Female

DRUGS (19)
  1. XOLAIR [Suspect]
     Indication: ASTHMA
     Route: 058
     Dates: start: 201304
  2. XOLAIR [Suspect]
     Route: 058
  3. HYDROCODONE/ACETAMINOPHEN [Concomitant]
     Route: 048
  4. EPIPEN [Concomitant]
     Dosage: INJECTABLE KIT
     Route: 065
  5. OMEPRAZOLE [Concomitant]
     Route: 048
  6. PREDNISONE [Concomitant]
     Route: 048
  7. PROAIR (UNITED STATES) [Concomitant]
     Dosage: TWO PUFFS
     Route: 065
  8. SINGULAIR [Concomitant]
     Route: 048
  9. SYMBICORT [Concomitant]
     Dosage: 160 MCG-4.5 MCG TWO PUFFS
     Route: 065
  10. ZETONNA [Concomitant]
     Dosage: TWO SPRAYS DALLY
     Route: 065
  11. ZOFRAN [Concomitant]
     Route: 048
  12. LEVAQUIN [Concomitant]
     Dosage: 7 DAYS WITH 1 REFLLL
     Route: 048
  13. DOXYCYCLINE [Concomitant]
  14. SOLU-MEDROL [Concomitant]
     Route: 065
  15. XANAX [Concomitant]
     Route: 048
  16. DEXAMETHASONE [Concomitant]
     Route: 048
  17. TYLENOL [Concomitant]
  18. CODEINE [Concomitant]
  19. LEVOFLOXACIN [Concomitant]
     Route: 048

REACTIONS (29)
  - Chest pain [Unknown]
  - Bronchospasm [Unknown]
  - Dyspnoea [Unknown]
  - Malaise [Unknown]
  - Chest discomfort [Unknown]
  - Wheezing [Unknown]
  - Pruritus [Unknown]
  - Dyspnoea [Unknown]
  - Asthma [Unknown]
  - Insomnia [Unknown]
  - Sneezing [Unknown]
  - Nasal congestion [Unknown]
  - Cough [Unknown]
  - Blood pressure increased [Unknown]
  - Dyspnoea [Unknown]
  - Increased upper airway secretion [Unknown]
  - Chills [Unknown]
  - Hypersensitivity [Unknown]
  - Wheezing [Unknown]
  - Tenderness [Unknown]
  - Blood immunoglobulin E increased [Unknown]
  - Headache [Unknown]
  - Sinus headache [Unknown]
  - Productive cough [Recovering/Resolving]
  - Pain [Unknown]
  - Nasal congestion [Unknown]
  - Rhinorrhoea [Unknown]
  - Oropharyngeal pain [Unknown]
  - Abdominal pain [Unknown]
